FAERS Safety Report 8830624 (Version 7)
Quarter: 2013Q1

REPORT INFORMATION
  Report Type: Spontaneous
  Country: US (occurrence: US)
  Receive Date: 20121008
  Receipt Date: 20130121
  Transmission Date: 20140127
  Serious: Yes (Hospitalization, Disabling, Other)
  Sender: FDA-Public Use
  Company Number: US-009507513-1206USA00837

PATIENT
  Sex: 0

DRUGS (3)
  1. FOSAMAX [Suspect]
     Indication: OSTEOPOROSIS
     Dosage: 10 MG, QD
     Route: 048
     Dates: start: 20010731, end: 200110
  2. FOSAMAX [Suspect]
     Dosage: 70 MG, QW
     Route: 048
     Dates: start: 200110, end: 201006
  3. FOSAMAX [Suspect]
     Dosage: 70 MG, UNK
     Route: 048

REACTIONS (41)
  - Open reduction of fracture [Unknown]
  - Type 2 diabetes mellitus [Unknown]
  - Renal failure [Unknown]
  - Urinary incontinence [Unknown]
  - Appendicectomy [Unknown]
  - Tonsillectomy [Unknown]
  - Bone disorder [Unknown]
  - Renal failure acute [Unknown]
  - Urinary tract infection [Unknown]
  - Fall [Unknown]
  - Pain [Unknown]
  - Diabetic neuropathy [Unknown]
  - Renal failure chronic [Not Recovered/Not Resolved]
  - Femur fracture [Not Recovered/Not Resolved]
  - Peptic ulcer [Unknown]
  - Urinary incontinence [Unknown]
  - Vitamin D deficiency [Unknown]
  - Hypothyroidism [Unknown]
  - Pulmonary mass [Unknown]
  - Cardiac failure congestive [Unknown]
  - Chronic obstructive pulmonary disease [Not Recovered/Not Resolved]
  - Calcium deficiency [Unknown]
  - Urinary tract infection [Unknown]
  - Hysterectomy [Unknown]
  - Hypotension [Unknown]
  - Fall [Unknown]
  - Anaemia [Unknown]
  - Pain [Unknown]
  - Hyponatraemia [Unknown]
  - Insomnia [Unknown]
  - Thyroid cyst [Unknown]
  - Lumbar spinal stenosis [Unknown]
  - Lumbar radiculopathy [Unknown]
  - Rotator cuff syndrome [Recovered/Resolved]
  - Diverticulum [Unknown]
  - Sleep apnoea syndrome [Unknown]
  - Hepatic steatosis [Unknown]
  - Intervertebral disc space narrowing [Unknown]
  - Scoliosis [Unknown]
  - Back pain [Unknown]
  - Gastrooesophageal reflux disease [Unknown]
